FAERS Safety Report 7573692-6 (Version None)
Quarter: 2011Q2

REPORT INFORMATION
  Report Type: 
  Country: None (occurrence: None)
  Receive Date: 20110627
  Receipt Date: 20110610
  Transmission Date: 20111010
  Serious: No
  Sender: FDA-Public Use
  Company Number: US-B.I. PHARMACEUTICALS,INC./RIDGEFIELD-2011-BP-14036BP

PATIENT
  Sex: Female

DRUGS (12)
  1. CELEXA [Concomitant]
     Indication: PANIC ATTACK
  2. CELEXA [Concomitant]
     Indication: ANXIETY
     Route: 048
  3. SPIRIVA [Suspect]
     Indication: CHRONIC OBSTRUCTIVE PULMONARY DISEASE
     Dosage: 18 MCG
     Route: 055
     Dates: start: 20081201
  4. OXYCONTIN [Concomitant]
     Indication: ARTHRITIS
  5. PROAIR HFA [Concomitant]
     Indication: CHRONIC OBSTRUCTIVE PULMONARY DISEASE
     Route: 055
  6. LORTAB [Concomitant]
     Indication: BACK PAIN
     Dosage: 20 MG
     Route: 048
  7. NEURONTIN [Concomitant]
     Indication: NEUROPATHY PERIPHERAL
     Dosage: 2400 MG
     Route: 048
  8. O2 AT NIGHT [Concomitant]
     Indication: CHRONIC OBSTRUCTIVE PULMONARY DISEASE
     Route: 055
  9. XANAX [Concomitant]
     Indication: ANXIETY
     Dosage: 3 MG
     Route: 048
  10. OXYCONTIN [Concomitant]
     Indication: BACK PAIN
     Dosage: 80 MG
     Route: 048
  11. LORTAB [Concomitant]
     Indication: ARTHRITIS
  12. SOMA [Concomitant]
     Indication: SLEEP DISORDER
     Dosage: 1050 MG
     Route: 048

REACTIONS (3)
  - DYSPNOEA [None]
  - VISION BLURRED [None]
  - DYSURIA [None]
